FAERS Safety Report 9787583 (Version 1)
Quarter: 2013Q4

REPORT INFORMATION
  Report Type: Spontaneous
  Country: IN (occurrence: IN)
  Receive Date: 20131230
  Receipt Date: 20131230
  Transmission Date: 20140711
  Serious: Yes (Other)
  Sender: FDA-Public Use
  Company Number: IN-SUN PHARMACEUTICAL INDUSTRIES LTD-2013SUN05274

PATIENT
  Sex: 0

DRUGS (3)
  1. AMLODIPINE [Suspect]
     Indication: PRODUCT USED FOR UNKNOWN INDICATION
     Dosage: 10 MG, OD
     Route: 048
  2. BIORAL [Suspect]
     Indication: PRODUCT USED FOR UNKNOWN INDICATION
     Dosage: 50 MG, TID
     Route: 048
  3. PREDNISOLONE [Concomitant]
     Dosage: 40 MG, 5 DF BD SINCE 8 YEARS
     Route: 065

REACTIONS (2)
  - Drug abuse [Unknown]
  - Gingival hyperplasia [Recovering/Resolving]
